FAERS Safety Report 17857006 (Version 1)
Quarter: 2020Q2

REPORT INFORMATION
  Report Type: Spontaneous
  Country: CN (occurrence: CN)
  Receive Date: 20200603
  Receipt Date: 20200603
  Transmission Date: 20200714
  Serious: Yes (Other)
  Sender: FDA-Public Use
  Company Number: CN-ASTRAZENECA-2020SE70248

PATIENT
  Age: 18993 Day
  Sex: Female
  Weight: 60 kg

DRUGS (2)
  1. PULMICORT RESPULES [Suspect]
     Active Substance: BUDESONIDE
     Indication: PROPHYLAXIS
     Route: 055
     Dates: start: 20200524, end: 20200524
  2. COMPOUND IPRATROPIUM BROMIDE [Concomitant]
     Active Substance: IPRATROPIUM BROMIDE
     Indication: PROPHYLAXIS
     Route: 045
     Dates: start: 20200524, end: 20200524

REACTIONS (3)
  - Pain in extremity [Unknown]
  - Dyspnoea [Recovered/Resolved]
  - Muscle spasms [Unknown]

NARRATIVE: CASE EVENT DATE: 20200524
